FAERS Safety Report 8181558-6 (Version None)
Quarter: 2012Q1

REPORT INFORMATION
  Report Type: 
  Country: None (occurrence: None)
  Receive Date: 20120302
  Receipt Date: 20120222
  Transmission Date: 20120608
  Serious: Yes (Other)
  Sender: FDA-Public Use
  Company Number: PHHY2012JP015349

PATIENT
  Age: 48 Year
  Sex: Male

DRUGS (7)
  1. GLIMEPIRIDE [Concomitant]
     Indication: DIABETES MELLITUS
  2. PREDNISOLONE [Suspect]
     Route: 042
  3. VOGLIBOSE TAKEDA [Suspect]
     Indication: DIABETES MELLITUS
  4. PREDNISOLONE [Suspect]
     Dosage: 40 MG, QD
  5. PREDNISOLONE [Suspect]
     Dosage: UNKNOWN
  6. PREDNISOLONE [Suspect]
     Indication: SYSTEMIC LUPUS ERYTHEMATOSUS
     Dosage: 50 MG, QD
     Route: 048
  7. PREDNISOLONE [Suspect]
     Dosage: 25 MG, QD

REACTIONS (3)
  - PNEUMOPERITONEUM [None]
  - FLATULENCE [None]
  - PNEUMATOSIS INTESTINALIS [None]
